FAERS Safety Report 9099480 (Version 8)
Quarter: 2016Q2

REPORT INFORMATION
  Report Type: Report from Study
  Country: GB (occurrence: GB)
  Receive Date: 20130214
  Receipt Date: 20160426
  Transmission Date: 20160815
  Serious: Yes (Hospitalization)
  Sender: FDA-Public Use
  Company Number: GB-ROCHE-1177209

PATIENT
  Age: 63 Year
  Sex: Male
  Weight: 85.7 kg

DRUGS (43)
  1. RITUXIMAB [Suspect]
     Active Substance: RITUXIMAB
     Indication: B-CELL LYMPHOMA
     Dosage: ON 02/JAN/2013, PATIENT RECEIVED MOST RECENT DOSE OF RITUXIMAB PRIOR TO SERIOUS ADVERSE EVENT (SAE).
     Route: 058
     Dates: start: 20121231
  2. HYDROCORTISONE. [Concomitant]
     Active Substance: HYDROCORTISONE
     Indication: PREMEDICATION
     Route: 065
     Dates: start: 20121031, end: 20121128
  3. GENTAMICIN. [Concomitant]
     Active Substance: GENTAMICIN
     Route: 065
     Dates: start: 20121129, end: 20121129
  4. ONDANSETRON [Concomitant]
     Active Substance: ONDANSETRON
     Indication: VOMITING
     Route: 065
     Dates: start: 20121128, end: 20121128
  5. PREDNISOLONE. [Concomitant]
     Active Substance: PREDNISOLONE
     Route: 065
     Dates: start: 20130105, end: 20130106
  6. RITUXIMAB [Suspect]
     Active Substance: RITUXIMAB
     Indication: B-CELL LYMPHOMA
     Route: 042
     Dates: start: 20121031
  7. RITUXIMAB [Suspect]
     Active Substance: RITUXIMAB
     Route: 042
     Dates: start: 20121128
  8. PIRITON [Concomitant]
     Active Substance: CHLORPHENIRAMINE MALEATE
     Route: 065
     Dates: start: 20130103, end: 20130105
  9. CETIRIZINE [Concomitant]
     Active Substance: CETIRIZINE HYDROCHLORIDE
     Indication: RASH
     Route: 065
     Dates: start: 20121231, end: 20130105
  10. ONDANSETRON [Concomitant]
     Active Substance: ONDANSETRON
     Indication: NAUSEA
     Route: 065
     Dates: start: 20121031, end: 20121031
  11. PARACETAMOL [Concomitant]
     Active Substance: ACETAMINOPHEN
     Route: 065
     Dates: start: 20121128, end: 20121128
  12. LACTULOSE. [Concomitant]
     Active Substance: LACTULOSE
     Route: 065
     Dates: start: 20121130, end: 20121130
  13. PIRITON [Concomitant]
     Active Substance: CHLORPHENIRAMINE MALEATE
     Route: 065
     Dates: start: 20121128, end: 20121128
  14. GENTAMICIN. [Concomitant]
     Active Substance: GENTAMICIN
     Indication: CHILLS
     Route: 065
     Dates: start: 20130103, end: 20130103
  15. LANSOPRAZOLE. [Concomitant]
     Active Substance: LANSOPRAZOLE
     Route: 065
     Dates: start: 20130104, end: 20130106
  16. EUMOVATE [Concomitant]
     Active Substance: CLOBETASONE BUTYRATE
     Indication: RASH
  17. LACTULOSE. [Concomitant]
     Active Substance: LACTULOSE
     Route: 065
     Dates: start: 20130103, end: 20130106
  18. TAZOCIN [Concomitant]
     Active Substance: PIPERACILLIN SODIUM\TAZOBACTAM SODIUM
     Route: 065
     Dates: start: 20130104, end: 20130104
  19. TAZOCIN [Concomitant]
     Active Substance: PIPERACILLIN SODIUM\TAZOBACTAM SODIUM
     Route: 065
     Dates: start: 20130103, end: 20130104
  20. HARTMANN^S SOLUTION [Concomitant]
     Active Substance: CALCIUM CHLORIDE\POTASSIUM CHLORIDE\SODIUM CHLORIDE\SODIUM LACTATE
     Route: 065
     Dates: start: 20120103, end: 20120103
  21. ALLOPURINOL. [Concomitant]
     Active Substance: ALLOPURINOL
     Route: 065
     Dates: start: 20121231, end: 20130107
  22. CHLORPHENIRAMINE. [Concomitant]
     Active Substance: CHLORPHENIRAMINE
     Route: 065
     Dates: start: 20130103, end: 20130106
  23. DALTEPARIN [Concomitant]
     Active Substance: DALTEPARIN
     Dosage: 5000 U
     Route: 065
     Dates: start: 20130103, end: 20130104
  24. PIRITON [Concomitant]
     Active Substance: CHLORPHENIRAMINE MALEATE
     Indication: CHILLS
     Route: 065
     Dates: start: 20121130, end: 20121130
  25. HYDROCORTISONE. [Concomitant]
     Active Substance: HYDROCORTISONE
     Route: 065
     Dates: start: 20121128, end: 20121128
  26. ONDANSETRON [Concomitant]
     Active Substance: ONDANSETRON
     Indication: PREMEDICATION
     Route: 065
     Dates: start: 20130102, end: 20130102
  27. DICLOFENAC [Concomitant]
     Active Substance: DICLOFENAC
     Route: 065
     Dates: start: 20130103, end: 20130104
  28. PIRITON [Concomitant]
     Active Substance: CHLORPHENIRAMINE MALEATE
     Indication: PREMEDICATION
     Route: 065
     Dates: start: 20121031, end: 20121128
  29. METOCLOPRAMIDE. [Concomitant]
     Active Substance: METOCLOPRAMIDE
     Indication: VOMITING
     Route: 065
     Dates: start: 20121231, end: 20130110
  30. DICLOFENAC [Concomitant]
     Active Substance: DICLOFENAC
     Indication: ANALGESIC THERAPY
     Route: 065
     Dates: start: 20130104, end: 20130104
  31. PREDNISOLONE. [Concomitant]
     Active Substance: PREDNISOLONE
     Indication: RASH
     Route: 065
     Dates: start: 20130104, end: 20130107
  32. PARACETAMOL [Concomitant]
     Active Substance: ACETAMINOPHEN
     Indication: PREMEDICATION
     Route: 065
     Dates: start: 20121031, end: 20121128
  33. LACTULOSE. [Concomitant]
     Active Substance: LACTULOSE
     Indication: CONSTIPATION
     Route: 065
     Dates: start: 20130104, end: 20130106
  34. EUMOVATE [Concomitant]
     Active Substance: CLOBETASONE BUTYRATE
  35. TAZOCIN [Concomitant]
     Active Substance: PIPERACILLIN SODIUM\TAZOBACTAM SODIUM
     Indication: CHILLS
     Route: 065
     Dates: start: 20121129, end: 20121130
  36. COCODAMOL [Concomitant]
     Active Substance: ACETAMINOPHEN\CODEINE PHOSPHATE
     Indication: ANALGESIC THERAPY
     Dosage: 120/2000 MG
     Route: 065
     Dates: start: 20130104, end: 20130106
  37. COCODAMOL [Concomitant]
     Active Substance: ACETAMINOPHEN\CODEINE PHOSPHATE
     Dosage: 120/2000 MG
     Route: 065
     Dates: start: 20130103, end: 20130106
  38. LANSOPRAZOLE. [Concomitant]
     Active Substance: LANSOPRAZOLE
     Route: 065
     Dates: start: 20130103, end: 20130104
  39. DALTEPARIN [Concomitant]
     Active Substance: DALTEPARIN
     Dosage: 5000 U
     Route: 065
     Dates: start: 20130104, end: 20130104
  40. PREDNISOLONE. [Concomitant]
     Active Substance: PREDNISOLONE
     Route: 065
     Dates: start: 20121231, end: 20130104
  41. PARACETAMOL [Concomitant]
     Active Substance: ACETAMINOPHEN
     Indication: ANALGESIC THERAPY
     Route: 065
     Dates: start: 20121130, end: 20121130
  42. HYDROCORTISONE. [Concomitant]
     Active Substance: HYDROCORTISONE
     Indication: CHILLS
     Route: 065
     Dates: start: 20121130, end: 20121130
  43. ALLOPURINOL. [Concomitant]
     Active Substance: ALLOPURINOL
     Indication: PROPHYLAXIS
     Route: 065
     Dates: start: 20121201, end: 20121202

REACTIONS (1)
  - Injection site haematoma [Recovered/Resolved with Sequelae]

NARRATIVE: CASE EVENT DATE: 20130103
